FAERS Safety Report 9392818 (Version 1)
Quarter: 2013Q3

REPORT INFORMATION
  Report Type: Spontaneous
  Country: US (occurrence: None)
  Receive Date: 20130708
  Receipt Date: 20130708
  Transmission Date: 20140515
  Serious: Yes (Other)
  Sender: FDA-Public Use
  Company Number: None

PATIENT
  Age: 80 Year
  Sex: Male
  Weight: 77.11 kg

DRUGS (1)
  1. FINASTERIDE [Suspect]
     Dosage: 06/23/06/23/06-24-2013; 1 PILL; SWALLOW
     Route: 048
     Dates: end: 20130624

REACTIONS (2)
  - Fatigue [None]
  - Hyperhidrosis [None]
